FAERS Safety Report 16872472 (Version 1)
Quarter: 2019Q4

REPORT INFORMATION
  Report Type: Report from Study
  Country: US (occurrence: US)
  Receive Date: 20191001
  Receipt Date: 20191001
  Transmission Date: 20200122
  Serious: Yes (Hospitalization)
  Sender: FDA-Public Use
  Company Number: US-MYLANLABS-2019M1090826

PATIENT
  Age: 6 Year
  Sex: Male
  Weight: 24.5 kg

DRUGS (5)
  1. TEMSIROLIMUS. [Suspect]
     Active Substance: TEMSIROLIMUS
     Indication: PRODUCT USED FOR UNKNOWN INDICATION
     Dosage: 15 MILLIGRAM/SQ. METER, CYCLE (IV OVER 30-60 MINUTES ON DAYS 1, 8, AND 15 FOR CYCLE 1-4)
     Route: 042
     Dates: start: 20190314, end: 20190802
  2. VINCRISTIN SULFATE [Suspect]
     Active Substance: VINCRISTINE SULFATE
     Indication: PRODUCT USED FOR UNKNOWN INDICATION
     Dosage: 1.5 MILLIGRAM/SQ. METER, CYCLE (IV OVER 1 MINUTES OR INFUSION VIA MINIBAG ON DAYS 1, 8, AND 15 FOR C
     Route: 042
     Dates: start: 20190314, end: 20190802
  3. CAMPTOSAR [Suspect]
     Active Substance: IRINOTECAN HYDROCHLORIDE
     Indication: PRODUCT USED FOR UNKNOWN INDICATION
     Dosage: 50 MILLIGRAM/SQ. METER, CYCLE (IV OVER 90 MINUTES ON DAYS 1-5 OF CYCLES 2 AND 4: ON DAYS 1-5 OF CYCL
     Route: 042
     Dates: start: 20190405, end: 20190730
  4. CYCLOPHOSPHAMIDE. [Suspect]
     Active Substance: CYCLOPHOSPHAMIDE
     Indication: PRODUCT USED FOR UNKNOWN INDICATION
     Dosage: 1200 MILLIGRAM/SQ. METER, CYCLE (IV OVER 60 MINUTES ON DAYS 1 OF CYCLES 1 AND 3: ON DAY 1 OF CYCLES
     Route: 042
     Dates: start: 20190314, end: 20190611
  5. DACTINOMYCIN [Suspect]
     Active Substance: DACTINOMYCIN
     Indication: PRODUCT USED FOR UNKNOWN INDICATION
     Dosage: 0.05 MILLIGRAM/KILOGRAM, CYCLE (IV OVER 1-5 MINUTES ON DAYS 1 OF CYCLES 1 AND 3; ON DAY1 OF CYCLES 5
     Route: 042
     Dates: start: 20190314, end: 20190611

REACTIONS (1)
  - Dehydration [Recovering/Resolving]

NARRATIVE: CASE EVENT DATE: 20190803
